FAERS Safety Report 4914848-8 (Version None)
Quarter: 2006Q1

REPORT INFORMATION
  Report Type: 
  Country: None (occurrence: None)
  Receive Date: 20060217
  Receipt Date: 20060210
  Transmission Date: 20060701
  Serious: Yes (Other)
  Sender: FDA-Public Use
  Company Number: PHBS2006TW02375

PATIENT
  Age: 33 Year
  Sex: Female
  Weight: 64.5 kg

DRUGS (4)
  1. OXYTOCIN [Suspect]
     Indication: LABOUR INDUCTION
     Dosage: 1 MU/MIN
  2. NORMAL SALINE [Concomitant]
     Dosage: 500 ML IN 30 MIN
     Route: 042
  3. LIDOCAINE [Concomitant]
  4. ACETAMINOPHEN [Concomitant]
     Route: 048

REACTIONS (4)
  - CONVULSION [None]
  - DROOLING [None]
  - DYSKINESIA [None]
  - LOSS OF CONSCIOUSNESS [None]
